FAERS Safety Report 10370301 (Version 1)
Quarter: 2014Q3

REPORT INFORMATION
  Report Type: Spontaneous
  Country: US (occurrence: US)
  Receive Date: 20140808
  Receipt Date: 20140808
  Transmission Date: 20150326
  Serious: Yes (Other)
  Sender: FDA-Public Use
  Company Number: US-ASTRAZENECA-2014SE56165

PATIENT
  Age: 73 Year
  Sex: Female
  Weight: 78 kg

DRUGS (11)
  1. PROTONIX [Concomitant]
     Active Substance: PANTOPRAZOLE SODIUM
     Dosage: 40 MG TIWK
  2. CO10 [Concomitant]
     Indication: SUPPLEMENTATION THERAPY
     Dosage: NOT REPORTED
  3. ZESTORETIC [Suspect]
     Active Substance: HYDROCHLOROTHIAZIDE\LISINOPRIL
     Indication: HYPERTENSION
     Dosage: 20+12.5 MG, ONE TABLET IN AM AND ONE TABLET IN PM
     Route: 048
     Dates: start: 20140701, end: 201407
  4. METFORMIN [Concomitant]
     Active Substance: METFORMIN HYDROCHLORIDE
  5. ZANTAC [Concomitant]
     Active Substance: RANITIDINE HYDROCHLORIDE
     Dosage: 150 OTHER
  6. ACTOS [Concomitant]
     Active Substance: PIOGLITAZONE HYDROCHLORIDE
     Dosage: 15 - 100 DAILY
  7. VITAMIN B12 [Concomitant]
     Active Substance: CYANOCOBALAMIN
     Indication: SUPPLEMENTATION THERAPY
     Dosage: NOT REPORTED
  8. HEME POLYPEPTIDE [Concomitant]
     Indication: ANAEMIA
  9. ZESTORETIC [Suspect]
     Active Substance: HYDROCHLOROTHIAZIDE\LISINOPRIL
     Indication: HYPERTENSION
     Dosage: 20+12.5 MG DAILY
     Route: 048
     Dates: end: 20140701
  10. ZESTORETIC [Suspect]
     Active Substance: HYDROCHLOROTHIAZIDE\LISINOPRIL
     Indication: HYPERTENSION
     Dosage: HALF 20+12.5 MG TABLET DAILY
     Route: 048
     Dates: start: 201407, end: 201407
  11. GLUCATROL [Concomitant]

REACTIONS (8)
  - Feeling abnormal [Unknown]
  - Intentional product misuse [Unknown]
  - Gait disturbance [Unknown]
  - Dizziness [Recovered/Resolved]
  - Anaemia [Unknown]
  - Off label use [Recovered/Resolved]
  - Fall [Unknown]
  - Blood pressure abnormal [Unknown]

NARRATIVE: CASE EVENT DATE: 2013
